FAERS Safety Report 12907394 (Version 1)
Quarter: 2016Q4

REPORT INFORMATION
  Report Type: Spontaneous
  Country: JP (occurrence: JP)
  Receive Date: 20161103
  Receipt Date: 20161103
  Transmission Date: 20170207
  Serious: Yes (Death, Other)
  Sender: FDA-Public Use
  Company Number: JP-ELI_LILLY_AND_COMPANY-JP201610010302

PATIENT
  Age: 55 Year
  Sex: Female

DRUGS (6)
  1. METHYLPREDNISOLONE. [Concomitant]
     Active Substance: METHYLPREDNISOLONE
     Indication: HODGKIN^S DISEASE
  2. ETOPOSIDE. [Concomitant]
     Active Substance: ETOPOSIDE
     Indication: HODGKIN^S DISEASE
  3. CYTARABINE. [Concomitant]
     Active Substance: CYTARABINE
     Indication: HODGKIN^S DISEASE
  4. CISPLATIN. [Concomitant]
     Active Substance: CISPLATIN
     Indication: HODGKIN^S DISEASE
  5. DECADRON [Concomitant]
     Active Substance: DEXAMETHASONE
     Indication: HODGKIN^S DISEASE
  6. GEMZAR [Suspect]
     Active Substance: GEMCITABINE HYDROCHLORIDE
     Indication: HODGKIN^S DISEASE
     Route: 042

REACTIONS (17)
  - Pneumonia viral [Unknown]
  - Interstitial lung disease [Unknown]
  - Cytomegalovirus test positive [Recovered/Resolved]
  - Pneumonia aspiration [Unknown]
  - Pulmonary haemorrhage [Not Recovered/Not Resolved]
  - Hepatic fibrosis [Unknown]
  - Pulmonary oedema [Not Recovered/Not Resolved]
  - Anuria [Fatal]
  - Central nervous system leukaemia [Unknown]
  - Acute respiratory distress syndrome [Fatal]
  - Meningitis viral [Unknown]
  - Pyrexia [Not Recovered/Not Resolved]
  - Blood pressure decreased [Unknown]
  - Depressed level of consciousness [Not Recovered/Not Resolved]
  - Diffuse alveolar damage [Unknown]
  - Oxygen saturation decreased [Unknown]
  - Renal tubular necrosis [Fatal]
